FAERS Safety Report 8402930-2 (Version None)
Quarter: 2012Q2

REPORT INFORMATION
  Report Type: 
  Country: None (occurrence: None)
  Receive Date: 20120601
  Receipt Date: 20120525
  Transmission Date: 20120825
  Serious: Yes (Death)
  Sender: FDA-Public Use
  Company Number: US-GLAXOSMITHKLINE-A0977586A

PATIENT
  Age: 44 Year
  Sex: Male

DRUGS (3)
  1. CCNU [Concomitant]
  2. BEVACIZUMAB [Concomitant]
  3. HYCAMTIN [Suspect]
     Indication: GLIOBLASTOMA MULTIFORME
     Route: 048

REACTIONS (1)
  - NEOPLASM PROGRESSION [None]
